FAERS Safety Report 9690807 (Version 2)
Quarter: 2013Q4

REPORT INFORMATION
  Report Type: Spontaneous
  Country: CH (occurrence: CH)
  Receive Date: 20131115
  Receipt Date: 20131115
  Transmission Date: 20140711
  Serious: Yes (Death, Life-Threatening, Hospitalization, Disabling, Other)
  Sender: FDA-Public Use
  Company Number: CH-ABBVIE-13X-151-1136712-00

PATIENT
  Age: 18 Year
  Sex: Female
  Weight: 75 kg

DRUGS (4)
  1. KLACID [Suspect]
     Indication: PNEUMONIA BACTERIAL
     Dates: start: 20130330, end: 20130402
  2. TAVANIC [Suspect]
     Indication: PNEUMONIA BACTERIAL
     Dates: start: 20130325, end: 20130330
  3. METAMIZOLE SODIUM [Suspect]
     Indication: PRODUCT USED FOR UNKNOWN INDICATION
     Dates: start: 20130330, end: 20130403
  4. ESOMEPRAZOLE [Suspect]
     Indication: PRODUCT USED FOR UNKNOWN INDICATION
     Route: 042
     Dates: start: 20130330, end: 20130403

REACTIONS (23)
  - Hypoxic-ischaemic encephalopathy [Fatal]
  - Brain oedema [Fatal]
  - Eosinophilic myocarditis [Not Recovered/Not Resolved]
  - Drug reaction with eosinophilia and systemic symptoms [Not Recovered/Not Resolved]
  - Ventricular dysfunction [Not Recovered/Not Resolved]
  - Eczema [Unknown]
  - Dermatitis atopic [Unknown]
  - Dermatitis allergic [Unknown]
  - Alanine aminotransferase increased [Unknown]
  - Renal failure acute [Recovered/Resolved]
  - Cardiogenic shock [Unknown]
  - Aspartate aminotransferase increased [Unknown]
  - Loss of consciousness [Unknown]
  - Muscle spasms [Unknown]
  - Muscle spasms [Unknown]
  - Partial seizures [Unknown]
  - Clonic convulsion [Unknown]
  - Blood brain barrier defect [Unknown]
  - Hypoxia [Unknown]
  - Pleural effusion [Unknown]
  - Pulmonary oedema [Unknown]
  - Arthralgia [Unknown]
  - Malaise [Unknown]
